FAERS Safety Report 7526109-1 (Version None)
Quarter: 2011Q2

REPORT INFORMATION
  Report Type: 
  Country: None (occurrence: None)
  Receive Date: 20110606
  Receipt Date: 20110527
  Transmission Date: 20111010
  Serious: Yes (Other)
  Sender: FDA-Public Use
  Company Number: JP-MERCK-1105USA03099

PATIENT
  Age: 65 Year
  Sex: Male

DRUGS (3)
  1. AMARYL [Concomitant]
     Route: 065
     Dates: start: 20101027, end: 20110119
  2. LASIX [Concomitant]
     Route: 065
     Dates: start: 20100409, end: 20110119
  3. JANUVIA [Suspect]
     Indication: TYPE 2 DIABETES MELLITUS
     Route: 048
     Dates: start: 20110119

REACTIONS (1)
  - HYPERAMYLASAEMIA [None]
